FAERS Safety Report 7065539-1 (Version None)
Quarter: 2010Q4

REPORT INFORMATION
  Report Type: 
  Country: None (occurrence: None)
  Receive Date: 20101027
  Receipt Date: 20101018
  Transmission Date: 20110411
  Serious: Yes (Life-Threatening, Hospitalization, Other)
  Sender: FDA-Public Use
  Company Number: SE-BAYER-201043001GPV

PATIENT
  Age: 42 Year
  Sex: Female

DRUGS (6)
  1. CIPROFLOXACIN [Suspect]
     Indication: UROSEPSIS
     Dosage: TOTAL DAILY DOSE: 1500 MG  UNIT DOSE: 750 MG
     Route: 048
  2. CIPROFLOXACIN [Interacting]
     Dosage: THREE TIMES IN THREE DIFFERENT DEPATMENTS
  3. METHADONE [Interacting]
     Indication: PAIN
  4. COTRIM [Concomitant]
  5. VENLAFAXINE [Concomitant]
  6. FLUOXETINE [Concomitant]

REACTIONS (4)
  - CONFUSIONAL STATE [None]
  - DRUG INTERACTION [None]
  - RESPIRATORY DEPRESSION [None]
  - SEDATION [None]
